FAERS Safety Report 11145226 (Version 1)
Quarter: 2015Q2

REPORT INFORMATION
  Report Type: Spontaneous
  Country: BR (occurrence: BR)
  Receive Date: 20150526
  Receipt Date: 20150526
  Transmission Date: 20150821
  Serious: Yes (Hospitalization, Other)
  Sender: FDA-Public Use
  Company Number: BR-JNJFOC-20150514399

PATIENT
  Sex: Female
  Weight: 47 kg

DRUGS (2)
  1. REMICADE [Suspect]
     Active Substance: INFLIXIMAB
     Indication: CROHN^S DISEASE
     Route: 042
     Dates: start: 2008
  2. REMICADE [Suspect]
     Active Substance: INFLIXIMAB
     Indication: CROHN^S DISEASE
     Route: 042
     Dates: start: 2010

REACTIONS (7)
  - Intestinal stenosis [Unknown]
  - Malnutrition [Unknown]
  - Drug effect decreased [Unknown]
  - Diarrhoea [Unknown]
  - Faecal incontinence [Unknown]
  - Dehydration [Unknown]
  - Vomiting [Unknown]
